FAERS Safety Report 24154899 (Version 1)
Quarter: 2024Q3

REPORT INFORMATION
  Report Type: Report from Study
  Country: BR (occurrence: BR)
  Receive Date: 20240731
  Receipt Date: 20240731
  Transmission Date: 20241017
  Serious: Yes (Other)
  Sender: JOHNSON AND JOHNSON
  Company Number: BR-JNJFOC-20240769814

PATIENT
  Age: 59 Year
  Sex: Female
  Weight: 71 kg

DRUGS (2)
  1. SIMPONI [Suspect]
     Active Substance: GOLIMUMAB
     Indication: Psoriatic arthropathy
     Route: 058
     Dates: end: 20240308
  2. SIMPONI [Suspect]
     Active Substance: GOLIMUMAB

REACTIONS (4)
  - Arthritis infective [Unknown]
  - Chondropathy [Unknown]
  - Hip arthroplasty [Unknown]
  - Product dose omission issue [Unknown]
